FAERS Safety Report 7893633-1 (Version None)
Quarter: 2011Q4

REPORT INFORMATION
  Report Type: 
  Country: None (occurrence: None)
  Receive Date: 20111104
  Receipt Date: 20111024
  Transmission Date: 20120403
  Serious: Yes (Hospitalization)
  Sender: FDA-Public Use
  Company Number: US-GLAXOSMITHKLINE-B0753798A

PATIENT
  Age: 48 Year
  Sex: Male
  Weight: 70.5 kg

DRUGS (10)
  1. SULFASALAZINE [Concomitant]
  2. METFORMIN HCL [Concomitant]
  3. ISONIAZID [Concomitant]
  4. PROPOXYPHENE HYDROCHLORIDE [Concomitant]
  5. PROMETHAZINE [Concomitant]
  6. LIPITOR [Concomitant]
  7. ALEVE [Concomitant]
  8. AVANDIA [Suspect]
     Indication: DIABETES MELLITUS
     Dosage: 4MG PER DAY
     Route: 048
  9. TRAMADOL HCL [Concomitant]
  10. SINGULAIR [Concomitant]

REACTIONS (9)
  - CARDIAC DISORDER [None]
  - ANXIETY [None]
  - ISCHAEMIC CARDIOMYOPATHY [None]
  - DEPRESSION [None]
  - CARDIAC FAILURE CONGESTIVE [None]
  - PAIN [None]
  - ARRHYTHMIA [None]
  - MYOCARDIAL INFARCTION [None]
  - CEREBROVASCULAR ACCIDENT [None]
